FAERS Safety Report 7281082-9 (Version None)
Quarter: 2011Q1

REPORT INFORMATION
  Report Type: 
  Country: None (occurrence: None)
  Receive Date: 20110208
  Receipt Date: 20110203
  Transmission Date: 20110831
  Serious: Yes (Other)
  Sender: FDA-Public Use
  Company Number: US-MERCK-1101USA01498

PATIENT
  Age: 71 Year
  Sex: Female

DRUGS (1)
  1. FOSAMAX [Suspect]
     Indication: OSTEOPOROSIS
     Route: 048
     Dates: start: 20071211, end: 20110120

REACTIONS (6)
  - RHEUMATOID ARTHRITIS [None]
  - OSTEOPOROSIS [None]
  - DRUG INEFFECTIVE [None]
  - INFECTIOUS MONONUCLEOSIS [None]
  - SYSTEMIC LUPUS ERYTHEMATOSUS [None]
  - SMALLPOX [None]
